FAERS Safety Report 10336267 (Version 1)
Quarter: 2014Q3

REPORT INFORMATION
  Report Type: Spontaneous
  Country: US (occurrence: US)
  Receive Date: 20140723
  Receipt Date: 20140723
  Transmission Date: 20150326
  Serious: No
  Sender: FDA-Public Use
  Company Number: US-UNITED THERAPEUTICS-UTC-047124

PATIENT
  Sex: Female
  Weight: 69.85 kg

DRUGS (3)
  1. TRACLEER [Concomitant]
     Active Substance: BOSENTAN\BOSENTAN MONOHYDRATE
  2. WARFARIN [Concomitant]
     Active Substance: WARFARIN
  3. REMODULIN [Suspect]
     Active Substance: TREPROSTINIL
     Dosage: 0.062 UG/KG/MIN
     Route: 058
     Dates: start: 20130329

REACTIONS (2)
  - Infusion site pain [Unknown]
  - Infusion site abscess [Unknown]
